FAERS Safety Report 5071706-9 (Version None)
Quarter: 2006Q3

REPORT INFORMATION
  Report Type: 
  Country: None (occurrence: None)
  Receive Date: 20060801
  Receipt Date: 20050531
  Transmission Date: 20061208
  Serious: Yes (Other)
  Sender: FDA-Public Use
  Company Number: 2005BH000060

PATIENT
  Age: 67 Year
  Sex: Female
  Weight: 63 kg

DRUGS (13)
  1. PANCURONIUM 2 MG AMPUL (PANCURONIUM) [Suspect]
     Indication: NEUROMUSCULAR BLOCKADE
  2. MAGNESIUM SULFATE [Suspect]
     Indication: ARRHYTHMIA PROPHYLAXIS
     Dosage: 2.5 GM
  3. VANCOMYCIN [Concomitant]
  4. FUROSEMIDE [Concomitant]
  5. MANNITOL [Concomitant]
  6. REMIFENTANIL [Concomitant]
  7. MORPHINE [Concomitant]
  8. HEPARIN [Concomitant]
  9. PROTAMINE SULFATE [Concomitant]
  10. NOREPINEPHRINE BITARTRATE [Concomitant]
  11. MILIRNONE [Concomitant]
  12. PENTASTARCH [Concomitant]
  13. CRYSTALLOID SOLUTION [Concomitant]

REACTIONS (10)
  - ANAEMIA POSTOPERATIVE [None]
  - AREFLEXIA [None]
  - DEPRESSED LEVEL OF CONSCIOUSNESS [None]
  - HEPATIC ENZYME INCREASED [None]
  - HYPOCALCAEMIA [None]
  - HYPOKALAEMIA [None]
  - MOTOR DYSFUNCTION [None]
  - NERVOUS SYSTEM DISORDER [None]
  - NEUROMUSCULAR BLOCK PROLONGED [None]
  - POSTOPERATIVE RENAL FAILURE [None]
